FAERS Safety Report 9825863 (Version 1)
Quarter: 2013Q4

REPORT INFORMATION
  Report Type: Spontaneous
  Country: US (occurrence: None)
  Receive Date: 20131104
  Receipt Date: 20131104
  Transmission Date: 20140711
  Serious: Yes (Other)
  Sender: FDA-Public Use
  Company Number: 1000049207

PATIENT
  Sex: Female

DRUGS (1)
  1. DALIRESP (ROFLUMILAST) (500 MICROGRAM, TABLETS) [Suspect]
     Dosage: 500 MCG, 1 IN 1 D
     Route: 048
     Dates: start: 20130921

REACTIONS (2)
  - Insomnia [None]
  - Therapeutic response unexpected [None]
